FAERS Safety Report 15350834 (Version 1)
Quarter: 2018Q4

REPORT INFORMATION
  Report Type: Spontaneous
  Country: US (occurrence: US)
  Receive Date: 20180905
  Receipt Date: 20180905
  Transmission Date: 20190204
  Serious: No
  Sender: FDA-Public Use
  Company Number: US-VIVIMED-2018SP004231

PATIENT

DRUGS (14)
  1. ARGININE [Suspect]
     Active Substance: ARGININE
     Indication: VASCULAR RESISTANCE SYSTEMIC
  2. ASPIRIN                            /00002701/ [Suspect]
     Active Substance: ASPIRIN
     Indication: VASCULAR RESISTANCE SYSTEMIC
  3. ISOSORBIDE MONONITRATE. [Suspect]
     Active Substance: ISOSORBIDE MONONITRATE
     Indication: ANGINA PECTORIS
     Dosage: 120 MG, DAILY
     Route: 048
  4. NEBIVOLOL. [Suspect]
     Active Substance: NEBIVOLOL
     Indication: ANGINA PECTORIS
     Dosage: 10 MG, DAILY
     Route: 048
  5. PRASUGREL. [Suspect]
     Active Substance: PRASUGREL
     Indication: ANGINA PECTORIS
     Dosage: 10 MG, DAILY
     Route: 048
  6. ARGININE [Suspect]
     Active Substance: ARGININE
     Indication: ANGINA PECTORIS
     Dosage: 1 G, BID
     Route: 048
  7. AMLODIPINE [Suspect]
     Active Substance: AMLODIPINE BESYLATE
     Indication: ANGINA PECTORIS
     Dosage: 10 MG, BID
     Route: 048
     Dates: start: 2014
  8. NEBIVOLOL. [Suspect]
     Active Substance: NEBIVOLOL
     Indication: VASCULAR RESISTANCE SYSTEMIC
  9. PRASUGREL. [Suspect]
     Active Substance: PRASUGREL
     Indication: VASCULAR RESISTANCE SYSTEMIC
  10. RANOLAZINE. [Suspect]
     Active Substance: RANOLAZINE
     Indication: ANGINA PECTORIS
     Dosage: 1 G, BID
     Route: 048
  11. ISOSORBIDE MONONITRATE. [Suspect]
     Active Substance: ISOSORBIDE MONONITRATE
     Indication: VASCULAR RESISTANCE SYSTEMIC
  12. AMLODIPINE [Suspect]
     Active Substance: AMLODIPINE BESYLATE
     Indication: VASCULAR RESISTANCE SYSTEMIC
  13. ASPIRIN                            /00002701/ [Suspect]
     Active Substance: ASPIRIN
     Indication: ANGINA PECTORIS
     Dosage: 325 MG, DAILY
     Route: 048
  14. RANOLAZINE. [Suspect]
     Active Substance: RANOLAZINE
     Indication: VASCULAR RESISTANCE SYSTEMIC

REACTIONS (2)
  - Hypotension [Unknown]
  - Nausea [Unknown]
